FAERS Safety Report 8117873 (Version 3)
Quarter: 2012Q4

REPORT INFORMATION
  Report Type: 
  Country: US (occurrence: US)
  Receive Date: 20110901
  Receipt Date: 20121003
  Transmission Date: 20130627
  Serious: Yes (Death, Hospitalization, Other)
  Sender: FDA-Public Use
  Company Number: US-MPIJNJ-2011-03592

PATIENT
  Age: 61 Year
  Sex: Male
  Weight: 79.93 kg

DRUGS (11)
  1. VELCADE [Suspect]
     Indication: MULTIPLE MYELOMA
     Dosage: 1.3 mg/m2, Cyclic
     Route: 042
     Dates: start: 20110414, end: 20110512
  2. DEXAMETHASONE [Suspect]
     Indication: MULTIPLE MYELOMA
     Dosage: 20 mg, 1/week
     Route: 048
     Dates: start: 20110414
  3. ALLOPURINOL [Concomitant]
     Indication: PRODUCT USED FOR UNKNOWN INDICATION
  4. COUMADIN /00014802/ [Concomitant]
     Indication: PRODUCT USED FOR UNKNOWN INDICATION
  5. TRACLEER [Concomitant]
     Indication: PRODUCT USED FOR UNKNOWN INDICATION
  6. NIACIN [Concomitant]
     Indication: PRODUCT USED FOR UNKNOWN INDICATION
  7. FOLGARD                            /01079901/ [Concomitant]
     Indication: PRODUCT USED FOR UNKNOWN INDICATION
  8. LOVENOX [Concomitant]
     Indication: PRODUCT USED FOR UNKNOWN INDICATION
  9. ZOFRAN                             /00955301/ [Concomitant]
     Indication: PRODUCT USED FOR UNKNOWN INDICATION
  10. NORCO [Concomitant]
     Indication: PRODUCT USED FOR UNKNOWN INDICATION
  11. AMBIEN [Concomitant]
     Indication: PRODUCT USED FOR UNKNOWN INDICATION

REACTIONS (8)
  - Multi-organ failure [Unknown]
  - Alveolitis [Unknown]
  - Pneumonia staphylococcal [Unknown]
  - Respiratory failure [Fatal]
  - Hypoxia [Fatal]
  - Amyloidosis [Fatal]
  - Oedema peripheral [Unknown]
  - Renal failure acute [Not Recovered/Not Resolved]
